FAERS Safety Report 10586134 (Version 2)
Quarter: 2014Q4

REPORT INFORMATION
  Report Type: Report from Study
  Country: NZ (occurrence: NZ)
  Receive Date: 20141115
  Receipt Date: 20141115
  Transmission Date: 20150529
  Serious: Yes (Death)
  Sender: FDA-Public Use
  Company Number: PHHY2014NZ093327

PATIENT
  Age: 38 Year
  Sex: Male
  Weight: 88.2 kg

DRUGS (2)
  1. CLOZARIL [Suspect]
     Active Substance: CLOZAPINE
     Indication: PSYCHOTIC DISORDER
     Dosage: 675 MG. DAILY AT NIGHT
     Route: 048
     Dates: start: 20040330
  2. PAROXETINE [Concomitant]
     Active Substance: PAROXETINE\PAROXETINE HYDROCHLORIDE
     Indication: ANXIETY
     Dosage: 10 TO 20 MG DAILY
     Route: 048

REACTIONS (6)
  - Psychotic disorder [Fatal]
  - Generalised anxiety disorder [Fatal]
  - Genital injury [Fatal]
  - Intentional self-injury [Fatal]
  - Genital haemorrhage [Fatal]
  - Antipsychotic drug level below therapeutic [Unknown]

NARRATIVE: CASE EVENT DATE: 20140205
